FAERS Safety Report 8463521-0 (Version None)
Quarter: 2012Q2

REPORT INFORMATION
  Report Type: 
  Country: None (occurrence: None)
  Receive Date: 20120625
  Receipt Date: 20120618
  Transmission Date: 20120825
  Serious: Yes (Other)
  Sender: FDA-Public Use
  Company Number: SE-PFIZER INC-2012146107

PATIENT
  Age: 83 Year
  Sex: Female

DRUGS (7)
  1. ATENOLOL [Concomitant]
     Dosage: UNK
  2. TOVIAZ [Suspect]
     Indication: HYPERTONIC BLADDER
     Dosage: 8 MG, UNK
     Dates: start: 20110514, end: 20120419
  3. OVESTERIN [Concomitant]
     Dosage: UNK
  4. SALURES [Concomitant]
     Dosage: UNK
  5. ACETAMINOPHEN [Concomitant]
     Dosage: UNK
  6. FELODIPINE [Concomitant]
     Dosage: UNK
  7. CALCIUM CARBONATE [Concomitant]
     Dosage: UNK

REACTIONS (1)
  - BLADDER DISORDER [None]
